FAERS Safety Report 7880257-5 (Version None)
Quarter: 2011Q4

REPORT INFORMATION
  Report Type: 
  Country: None (occurrence: None)
  Receive Date: 20111101
  Receipt Date: 20100831
  Transmission Date: 20120403
  Serious: No
  Sender: FDA-Public Use
  Company Number: US-BAYER-201032775NA

PATIENT
  Sex: Female

DRUGS (5)
  1. NASONEX [Concomitant]
  2. AVELOX [Suspect]
  3. MUCINEX [Concomitant]
  4. COUGH SYRUP [Concomitant]
  5. CLARINEX [Concomitant]

REACTIONS (1)
  - NAUSEA [None]
